FAERS Safety Report 18776301 (Version 1)
Quarter: 2021Q1

REPORT INFORMATION
  Report Type: Spontaneous
  Country: CA (occurrence: CA)
  Receive Date: 20210122
  Receipt Date: 20210122
  Transmission Date: 20210419
  Serious: Yes (Hospitalization)
  Sender: FDA-Public Use
  Company Number: CA-PFIZER INC-2021044762

PATIENT
  Age: 1 Month
  Sex: Female
  Weight: 2 kg

DRUGS (7)
  1. FERROUS SULFATE. [Concomitant]
     Active Substance: FERROUS SULFATE
     Dosage: UNK
  2. TOOTSWEET [Concomitant]
     Dosage: UNK
  3. ZINC OXIDE. [Concomitant]
     Active Substance: ZINC OXIDE
     Dosage: UNK
  4. POLY?VI?SOL [ASCORBIC ACID;CYANOCOBALAMIN;ERGOCALCIFEROL;NICOTINAMIDE; [Concomitant]
     Dosage: UNK
  5. SMOFLIPID [Concomitant]
     Active Substance: FISH OIL\MEDIUM-CHAIN TRIGLYCERIDES\OLIVE OIL\SOYBEAN OIL
     Dosage: UNK
  6. VANCOMYCIN HCL [Suspect]
     Active Substance: VANCOMYCIN HYDROCHLORIDE
     Indication: SEPSIS
     Dosage: 32 MG, 3X/DAY (1 EVERY 8 HOURS)
     Route: 042
  7. CEFOTAXIME [Concomitant]
     Active Substance: CEFOTAXIME SODIUM
     Dosage: UNK

REACTIONS (3)
  - Drug level above therapeutic [Unknown]
  - Blood creatinine increased [Unknown]
  - Toxicity to various agents [Unknown]
